FAERS Safety Report 4356840-0 (Version None)
Quarter: 2004Q2

REPORT INFORMATION
  Report Type: 
  Country: None (occurrence: None)
  Receive Date: 20040507
  Receipt Date: 20040419
  Transmission Date: 20050107
  Serious: Yes (Life-Threatening, Hospitalization)
  Sender: FDA-Public Use
  Company Number: DE_040413427

PATIENT
  Age: 78 Year
  Sex: Male

DRUGS (5)
  1. GEMZAR [Suspect]
     Indication: RENAL CELL CARCINOMA STAGE UNSPECIFIED
     Dosage: 1000 MG/M2
     Dates: start: 20030101
  2. ENOXAPARIN SODIUM [Concomitant]
  3. ISCOVER (CLOPIDOGREL SULFATE) [Concomitant]
  4. SELECTOL (CELIPROLOL HYDROCHLORIDE) [Concomitant]
  5. TRIAMPUR [Concomitant]

REACTIONS (7)
  - ACUTE CORONARY SYNDROME [None]
  - DYSPNOEA [None]
  - MYOCARDIAL INFARCTION [None]
  - PERICARDIAL EFFUSION [None]
  - PLEURAL EFFUSION [None]
  - PULMONARY CONGESTION [None]
  - RENAL FUNCTION TEST ABNORMAL [None]
